FAERS Safety Report 10431140 (Version 2)
Quarter: 2019Q3

REPORT INFORMATION
  Report Type: Spontaneous
  Country: US (occurrence: TH)
  Receive Date: 20140904
  Receipt Date: 20190801
  Transmission Date: 20191004
  Serious: Yes (Other)
  Sender: FDA-Public Use
  Company Number: PHHY2014TH110333

PATIENT
  Age: 14 Year
  Sex: Female

DRUGS (1)
  1. CAFFEINE CITRATE,ERGOTAMINE TARTRATE [Suspect]
     Active Substance: CAFFEINE CITRATE\ERGOTAMINE TARTRATE
     Indication: PRODUCT USED FOR UNKNOWN INDICATION
     Dosage: 100 DF, UNK
     Route: 048

REACTIONS (5)
  - Vomiting [Recovered/Resolved]
  - Suicidal ideation [Unknown]
  - Palpitations [Recovered/Resolved]
  - Intentional overdose [Unknown]
  - Ergot poisoning [Unknown]
